FAERS Safety Report 7904687-8 (Version None)
Quarter: 2011Q4

REPORT INFORMATION
  Report Type: 
  Country: None (occurrence: None)
  Receive Date: 20111109
  Receipt Date: 20111005
  Transmission Date: 20120403
  Serious: Yes (Hospitalization)
  Sender: FDA-Public Use
  Company Number: JP-GLAXOSMITHKLINE-B0753592A

PATIENT
  Sex: Female
  Weight: 46 kg

DRUGS (10)
  1. VALTREX [Suspect]
     Indication: HERPES ZOSTER
     Dosage: 3000MG PER DAY
     Route: 048
     Dates: start: 20110929, end: 20111003
  2. LOXONIN [Concomitant]
     Indication: MUSCULOSKELETAL PAIN
     Dosage: 180MG PER DAY
     Route: 048
     Dates: start: 20110929, end: 20111001
  3. LIPITOR [Concomitant]
     Route: 048
     Dates: end: 20111003
  4. DEPAS [Concomitant]
     Route: 048
  5. DOGMATYL [Concomitant]
     Route: 048
     Dates: end: 20111003
  6. GASMOTIN [Concomitant]
     Route: 048
  7. CEFAZOLIN SODIUM [Concomitant]
     Route: 048
  8. KAMAG G [Concomitant]
     Route: 048
  9. MOBIC [Concomitant]
     Route: 048
  10. DICLOFENAC SODIUM [Concomitant]
     Dosage: 75MG PER DAY
     Route: 048
     Dates: start: 20111001, end: 20111003

REACTIONS (4)
  - MUSCULOSKELETAL PAIN [None]
  - DIZZINESS [None]
  - RENAL FAILURE ACUTE [None]
  - URINE OUTPUT DECREASED [None]
